FAERS Safety Report 12892136 (Version 1)
Quarter: 2016Q4

REPORT INFORMATION
  Report Type: Spontaneous
  Country: EG (occurrence: EG)
  Receive Date: 20161028
  Receipt Date: 20161028
  Transmission Date: 20170207
  Serious: Yes (Hospitalization, Other)
  Sender: FDA-Public Use
  Company Number: EG-009507513-1610EGY014728

PATIENT
  Age: 69 Year
  Sex: Female

DRUGS (1)
  1. KEYTRUDA [Suspect]
     Active Substance: PEMBROLIZUMAB
     Indication: NON-SMALL CELL LUNG CANCER METASTATIC

REACTIONS (5)
  - Hepatic enzyme increased [Recovering/Resolving]
  - Hyponatraemia [Recovering/Resolving]
  - Altered state of consciousness [Unknown]
  - Hypokalaemia [Recovering/Resolving]
  - Hypocalcaemia [Recovered/Resolved]
